FAERS Safety Report 14427523 (Version 2)
Quarter: 2019Q1

REPORT INFORMATION
  Report Type: Spontaneous
  Country: US (occurrence: US)
  Receive Date: 20180123
  Receipt Date: 20190303
  Transmission Date: 20190417
  Serious: No
  Sender: FDA-Public Use
  Company Number: US-IMPAX LABORATORIES, INC-2017-IPXL-03858

PATIENT
  Sex: Male
  Weight: 86 kg

DRUGS (7)
  1. CLOPIDOGREL [Concomitant]
     Active Substance: CLOPIDOGREL BISULFATE
     Indication: ANTICOAGULANT THERAPY
     Dosage: UNK
     Route: 065
  2. FINASTERIDE. [Concomitant]
     Active Substance: FINASTERIDE
     Indication: BLADDER DISORDER
     Dosage: UNK
     Route: 065
  3. ARIPIPRAZOLE. [Concomitant]
     Active Substance: ARIPIPRAZOLE
     Indication: PRODUCT USED FOR UNKNOWN INDICATION
     Dosage: UNK
     Route: 065
  4. CELEXA [Concomitant]
     Active Substance: CITALOPRAM HYDROBROMIDE
     Indication: PRODUCT USED FOR UNKNOWN INDICATION
     Dosage: 40 MG, UNK
     Route: 065
  5. RYTARY [Suspect]
     Active Substance: CARBIDOPA\LEVODOPA
     Dosage: 23.75/95MG, 2 CAPSULE, THREE TIMES DAILY
     Route: 065
     Dates: start: 20171204
  6. RYTARY [Suspect]
     Active Substance: CARBIDOPA\LEVODOPA
     Indication: PARKINSON^S DISEASE
     Dosage: 23.75/95MG, 1 CAPSULE, THREE TIMES DAILY
     Route: 065
     Dates: start: 20171108, end: 20171204
  7. COUMADIN [Concomitant]
     Active Substance: WARFARIN SODIUM
     Indication: VENA CAVA FILTER INSERTION
     Dosage: HIGH DOSAGES, UNK
     Route: 065

REACTIONS (1)
  - Dyskinesia [Not Recovered/Not Resolved]

NARRATIVE: CASE EVENT DATE: 2017
